FAERS Safety Report 6663719-8 (Version None)
Quarter: 2010Q2

REPORT INFORMATION
  Report Type: 
  Country: None (occurrence: None)
  Receive Date: 20100401
  Receipt Date: 20100324
  Transmission Date: 20101027
  Serious: Yes (Hospitalization)
  Sender: FDA-Public Use
  Company Number: JP-ROCHE-694358

PATIENT
  Age: 14 Year
  Sex: Male

DRUGS (12)
  1. TOCILIZUMAB [Suspect]
     Indication: JUVENILE ARTHRITIS
     Dosage: FORM: INJECTION
     Route: 041
     Dates: start: 20100224, end: 20100309
  2. PREDNISOLONE [Concomitant]
     Route: 048
     Dates: start: 20100129, end: 20100205
  3. PREDNISOLONE [Concomitant]
     Route: 048
     Dates: start: 20100209, end: 20100212
  4. PREDNISOLONE [Concomitant]
     Route: 048
     Dates: start: 20100216, end: 20100219
  5. PREDNISOLONE [Concomitant]
     Route: 048
     Dates: start: 20100223, end: 20100304
  6. PREDNISOLONE [Concomitant]
     Route: 048
     Dates: start: 20100305, end: 20100315
  7. SOL-MELCORT [Concomitant]
     Dosage: FORM: INJECTION
     Route: 042
     Dates: start: 20100206, end: 20100208
  8. SOL-MELCORT [Concomitant]
     Route: 042
     Dates: start: 20100213, end: 20100215
  9. SOL-MELCORT [Concomitant]
     Route: 042
     Dates: start: 20100220, end: 20100222
  10. SOL-MELCORT [Concomitant]
     Route: 042
     Dates: start: 20100319, end: 20100321
  11. IBRUPROFEN [Concomitant]
     Dosage: FORM: PERORAL AGENT
     Route: 048
     Dates: start: 20100112, end: 20100319
  12. NAIXAN [Concomitant]
     Route: 048
     Dates: start: 20100122, end: 20100129

REACTIONS (1)
  - LIVER DISORDER [None]
